FAERS Safety Report 19643417 (Version 10)
Quarter: 2022Q1

REPORT INFORMATION
  Report Type: Report from Study
  Country: US (occurrence: US)
  Receive Date: 20210731
  Receipt Date: 20220210
  Transmission Date: 20220424
  Serious: Yes (Hospitalization, Other)
  Sender: FDA-Public Use
  Company Number: NVSC2021US164801

PATIENT
  Age: 52 Year
  Sex: Female
  Weight: 90.703 kg

DRUGS (4)
  1. TREPROSTINIL [Suspect]
     Active Substance: TREPROSTINIL
     Indication: Pulmonary arterial hypertension
     Dosage: 52.85 NG/KG/MIN CONT
     Route: 042
     Dates: start: 20210513
  2. TREPROSTINIL [Suspect]
     Active Substance: TREPROSTINIL
     Dosage: 60.35 NG/KG/MIN CONT
     Route: 042
     Dates: start: 20210513
  3. LETAIRIS [Concomitant]
     Active Substance: AMBRISENTAN
     Indication: Product used for unknown indication
     Dosage: UNK
     Route: 065
  4. TADALAFIL [Concomitant]
     Active Substance: TADALAFIL
     Indication: Product used for unknown indication
     Dosage: UNK
     Route: 065

REACTIONS (7)
  - Pulmonary hypertension [Unknown]
  - Oedema [Unknown]
  - Fluid retention [Unknown]
  - Renal impairment [Unknown]
  - COVID-19 [Unknown]
  - Seizure [Unknown]
  - Anaemia [Unknown]

NARRATIVE: CASE EVENT DATE: 20211115
